FAERS Safety Report 9474878 (Version 1)
Quarter: 2013Q3

REPORT INFORMATION
  Report Type: Report from Study
  Country: US (occurrence: US)
  Receive Date: 20130823
  Receipt Date: 20130823
  Transmission Date: 20140515
  Serious: Yes (Hospitalization)
  Sender: FDA-Public Use
  Company Number: US-ROCHE-1264249

PATIENT
  Age: 40 Year
  Sex: Female

DRUGS (5)
  1. HERCEPTIN [Suspect]
     Indication: BREAST CANCER
     Route: 042
     Dates: start: 20080101, end: 20080901
  2. HERCEPTIN [Suspect]
     Indication: BREAST CANCER METASTATIC
     Route: 042
     Dates: start: 20130529, end: 20130702
  3. KADCYLA [Suspect]
     Indication: BREAST CANCER METASTATIC
     Route: 042
     Dates: start: 20130722
  4. PACLITAXEL [Concomitant]
     Indication: BREAST CANCER METASTATIC
     Route: 042
     Dates: start: 20130529, end: 20130702
  5. CARBOPLATIN [Concomitant]
     Indication: BREAST CANCER METASTATIC
     Route: 042
     Dates: start: 20130529, end: 20130702

REACTIONS (4)
  - Infection [Recovering/Resolving]
  - Drug hypersensitivity [Recovered/Resolved]
  - Full blood count decreased [Recovering/Resolving]
  - Platelet count decreased [Recovering/Resolving]
